FAERS Safety Report 8256040-8 (Version None)
Quarter: 2012Q1

REPORT INFORMATION
  Report Type: 
  Country: None (occurrence: None)
  Receive Date: 20120329
  Receipt Date: 20120315
  Transmission Date: 20120608
  Serious: Yes (Hospitalization)
  Sender: FDA-Public Use
  Company Number: DSJ-2012-05188

PATIENT
  Age: 54 Year
  Sex: Female

DRUGS (4)
  1. AMLODIPINE BESYLATE AND OLMESARTAN MEDOXOMIL [Suspect]
     Indication: HYPERTENSION
     Dosage: 20/5 MG (1 IN 1 D), ORAL, 20/5 MG (1 IN 1D), PER ORAL
     Route: 048
     Dates: start: 20111001
  2. AMLODIPINE BESYLATE AND OLMESARTAN MEDOXOMIL [Suspect]
     Indication: HYPERTENSION
     Dosage: 20/5 MG (1 IN 1 D), ORAL, 20/5 MG (1 IN 1D), PER ORAL
     Route: 048
     Dates: start: 20090101, end: 20111001
  3. LEVOTHYROXINE SODIUM [Concomitant]
  4. AMLODIPINE [Concomitant]

REACTIONS (2)
  - INTERVERTEBRAL DISC OPERATION [None]
  - NOSOCOMIAL INFECTION [None]
